FAERS Safety Report 9984971 (Version 1)
Quarter: 2014Q1

REPORT INFORMATION
  Report Type: Report from Study
  Country: US (occurrence: US)
  Receive Date: 20140307
  Receipt Date: 20140307
  Transmission Date: 20141002
  Serious: No
  Sender: FDA-Public Use
  Company Number: US-ABBVIE-14P-163-1186638-00

PATIENT
  Age: 45 Year
  Sex: Female

DRUGS (9)
  1. HUMIRA [Suspect]
     Indication: ANKYLOSING SPONDYLITIS
     Dates: start: 201306
  2. HUMIRA [Suspect]
  3. HUMIRA [Suspect]
     Dates: start: 20131227
  4. LISINOPRIL [Concomitant]
     Indication: HYPERTENSION
     Dosage: 5 MG DAILY
  5. VENLAFAXINE [Concomitant]
     Indication: DEPRESSION
     Dosage: DAILY
  6. PENTASA [Concomitant]
     Indication: CROHN^S DISEASE
     Dosage: DAILY
  7. AZATHIOPRINE [Concomitant]
     Indication: CROHN^S DISEASE
     Dosage: DAILY
  8. SLOW IRON [Concomitant]
     Indication: ANAEMIA
     Dosage: DAILY SUPPLEMENT
  9. POTASSIUM [Concomitant]
     Indication: BLOOD POTASSIUM DECREASED

REACTIONS (7)
  - Injection site bruising [Recovering/Resolving]
  - Wrong technique in drug usage process [Not Recovered/Not Resolved]
  - Sinusitis [Recovered/Resolved]
  - Injection site pain [Recovered/Resolved]
  - Asthma [Unknown]
  - Sinusitis [Not Recovered/Not Resolved]
  - Injection site haemorrhage [Recovered/Resolved]
